FAERS Safety Report 5242716-3 (Version None)
Quarter: 2007Q1

REPORT INFORMATION
  Report Type: 
  Country: None (occurrence: None)
  Receive Date: 20070221
  Receipt Date: 20070219
  Transmission Date: 20070707
  Serious: Yes (Hospitalization)
  Sender: FDA-Public Use
  Company Number: US-GLAXOSMITHKLINE-A0640083A

PATIENT
  Age: 49 Year
  Sex: Male
  Weight: 136.4 kg

DRUGS (3)
  1. COREG [Suspect]
     Dosage: 25MG UNKNOWN
     Route: 048
  2. ANTIHYPERTENSIVE [Concomitant]
  3. INSULIN [Concomitant]

REACTIONS (3)
  - ASTHENIA [None]
  - MALAISE [None]
  - SOMNOLENCE [None]
